FAERS Safety Report 22184368 (Version 2)
Quarter: 2023Q2

REPORT INFORMATION
  Report Type: Spontaneous
  Country: None (occurrence: US)
  Receive Date: 20230407
  Receipt Date: 20230506
  Transmission Date: 20230721
  Serious: Yes (Other)
  Sender: FDA-Public Use
  Company Number: US-Innogenix, LLC-2140035

PATIENT
  Age: 84 Year
  Sex: Female
  Weight: 56 kg

DRUGS (4)
  1. CAPTOPRIL [Suspect]
     Active Substance: CAPTOPRIL
     Indication: Blood pressure measurement
     Route: 048
     Dates: end: 202301
  2. ATENOLOL [Concomitant]
     Active Substance: ATENOLOL
     Route: 065
  3. CLONIDINE HYDROCHLORIDE [Concomitant]
     Active Substance: CLONIDINE HYDROCHLORIDE
     Route: 065
  4. Atorvaststin [Concomitant]
     Route: 065

REACTIONS (3)
  - Rectal haemorrhage [Recovered/Resolved]
  - Abdominal pain upper [Recovered/Resolved]
  - Product substitution issue [Unknown]

NARRATIVE: CASE EVENT DATE: 20230101
